FAERS Safety Report 6664678-4 (Version None)
Quarter: 2010Q1

REPORT INFORMATION
  Report Type: 
  Country: None (occurrence: None)
  Receive Date: 20100330
  Receipt Date: 20100301
  Transmission Date: 20100710
  Serious: Yes (Other)
  Sender: FDA-Public Use
  Company Number: 6058433

PATIENT
  Age: 47 Year
  Sex: Female

DRUGS (2)
  1. EUTIROX (100 MICROGRAM) (LEVOTHYROXINE SODIUM) [Suspect]
     Indication: HYPOTHYROIDISM
     Dosage: 100 MCG (100 MCG, 1 IN 1D), ORAL
     Route: 048
     Dates: start: 20090201, end: 20100227
  2. VENLAFAXINE HCL [Concomitant]

REACTIONS (2)
  - PRURITUS [None]
  - URTICARIA [None]
